FAERS Safety Report 10248717 (Version 1)
Quarter: 2014Q2

REPORT INFORMATION
  Report Type: Spontaneous
  Country: GB (occurrence: GB)
  Receive Date: 20140620
  Receipt Date: 20140620
  Transmission Date: 20141212
  Serious: Yes (Other)
  Sender: FDA-Public Use
  Company Number: GB-009507513-1406GBR007000

PATIENT
  Sex: 0

DRUGS (1)
  1. ONCOTICE [Suspect]
     Indication: BLADDER CANCER
     Dosage: ONE VIAL WEEKLY/WEEKLEY INSILATIONS DURING THE FIRST 6 WEEKS, THEN 3 CONSECUTIVE WEEKLY INSTILATIONS
     Route: 043

REACTIONS (2)
  - Lower urinary tract symptoms [Unknown]
  - Drug intolerance [Unknown]
